FAERS Safety Report 9950328 (Version 1)
Quarter: 2014Q1

REPORT INFORMATION
  Report Type: Report from Study
  Country: US (occurrence: US)
  Receive Date: 20140304
  Receipt Date: 20140304
  Transmission Date: 20141002
  Serious: No
  Sender: FDA-Public Use
  Company Number: US-ABBVIE-13P-163-1069413-00

PATIENT
  Age: 50 Year
  Sex: Female
  Weight: 70.37 kg

DRUGS (8)
  1. HUMIRA [Suspect]
     Indication: CROHN^S DISEASE
     Dosage: ONCE
     Dates: start: 2007, end: 2007
  2. HUMIRA [Suspect]
     Dates: start: 2007
  3. HUMIRA [Suspect]
     Dosage: ONCE
     Dates: start: 20130308, end: 20130308
  4. HUMIRA [Suspect]
     Dosage: ONCE
     Dates: start: 20130317
  5. HCTZ [Concomitant]
     Indication: HYPERTENSION
  6. SIMVASTATIN [Concomitant]
     Indication: BLOOD CHOLESTEROL INCREASED
  7. NORTREL [Concomitant]
     Indication: CONTRACEPTION
  8. UNKNOWN CALCIUM CHANNEL BLOCKER [Concomitant]
     Indication: ATRIAL TACHYCARDIA

REACTIONS (6)
  - Large intestinal ulcer [Not Recovered/Not Resolved]
  - Crohn^s disease [Not Recovered/Not Resolved]
  - Large intestine polyp [Not Recovered/Not Resolved]
  - Gastrointestinal inflammation [Not Recovered/Not Resolved]
  - Abdominal pain [Recovered/Resolved]
  - Diarrhoea [Recovered/Resolved]
